FAERS Safety Report 14994027 (Version 1)
Quarter: 2018Q2

REPORT INFORMATION
  Report Type: Report from Study
  Country: ES (occurrence: ES)
  Receive Date: 20180611
  Receipt Date: 20180611
  Transmission Date: 20180711
  Serious: Yes (Other)
  Sender: FDA-Public Use
  Company Number: ES-TEVA-2018-ES-905578

PATIENT
  Age: 86 Year
  Sex: Female

DRUGS (7)
  1. BISOPROLOL (2328A) [Concomitant]
     Active Substance: BISOPROLOL
     Indication: HYPERTENSION
     Dosage: 2,5 MG DIA
     Route: 048
     Dates: start: 201706
  2. MERONEM I.V. 1 G POLVO PARA SOLUCION INYECTABLE Y PARA PERFUSION , 1 V [Concomitant]
     Dosage: /8H
     Route: 042
     Dates: start: 20170811
  3. PANTOPRAZOLE [Suspect]
     Active Substance: PANTOPRAZOLE
     Dosage: 40 MG, 1-0-0
     Route: 048
     Dates: start: 20170811
  4. TRAZODONA [Concomitant]
     Active Substance: TRAZODONE HYDROCHLORIDE
     Dosage: 100 MG /8H
     Route: 048
  5. PARACETAMOL [Concomitant]
     Active Substance: ACETAMINOPHEN
     Dosage: 1GR/8H
     Route: 042
     Dates: start: 20170811
  6. ENOXAPARINA [Concomitant]
     Active Substance: ENOXAPARIN
     Route: 058
     Dates: start: 20170811
  7. LOSARTAN. [Concomitant]
     Active Substance: LOSARTAN
     Indication: HYPERTENSION
     Dosage: 50 MG DIA
     Route: 048
     Dates: start: 201706

REACTIONS (2)
  - Drug interaction [Unknown]
  - Hypokalaemia [Recovered/Resolved]

NARRATIVE: CASE EVENT DATE: 20170814
